FAERS Safety Report 7437566-3 (Version None)
Quarter: 2011Q2

REPORT INFORMATION
  Report Type: 
  Country: None (occurrence: None)
  Receive Date: 20110426
  Receipt Date: 20110414
  Transmission Date: 20111010
  Serious: Yes (Hospitalization)
  Sender: FDA-Public Use
  Company Number: US-ELI_LILLY_AND_COMPANY-US201011000658

PATIENT
  Sex: Female

DRUGS (22)
  1. FORTEO [Suspect]
     Indication: OSTEOPOROSIS
     Dosage: 20 UG, DAILY (1/D)
     Route: 065
     Dates: start: 20101025
  2. ELMIRON [Concomitant]
  3. OSCAL D                            /00944201/ [Concomitant]
  4. FEXOFENADINE [Concomitant]
  5. PREMARIN [Concomitant]
  6. POTASSIUM CHLORIDE [Concomitant]
  7. ASPIRIN [Concomitant]
  8. GLYBURIDE [Concomitant]
  9. FORTEO [Suspect]
     Dosage: 20 UG, QD
     Route: 065
  10. GLUCOSAMINE [Concomitant]
  11. TYLENOL                                 /SCH/ [Concomitant]
     Indication: PAIN
  12. MAGNESIUM [Concomitant]
  13. PRILOSEC [Concomitant]
  14. REGLAN [Concomitant]
  15. SIMVASTATIN [Concomitant]
  16. ALBUTEROL [Concomitant]
     Dosage: UNK, PRN
  17. WARFARIN [Concomitant]
  18. LASIX [Concomitant]
  19. CENTRUM SILVER [Concomitant]
  20. LOSARTAN POTASSIUM [Concomitant]
  21. PLAVIX [Concomitant]
  22. AMITRIPTYLINE [Concomitant]

REACTIONS (11)
  - NAUSEA [None]
  - DYSPNOEA [None]
  - PAIN IN EXTREMITY [None]
  - CYSTOCELE [None]
  - HEADACHE [None]
  - VOMITING [None]
  - BRONCHITIS [None]
  - CHEST PAIN [None]
  - OEDEMA PERIPHERAL [None]
  - ULCER [None]
  - PAIN [None]
